FAERS Safety Report 20518175 (Version 5)
Quarter: 2022Q2

REPORT INFORMATION
  Report Type: Other
  Country: US (occurrence: None)
  Receive Date: 20220225
  Receipt Date: 20220626
  Transmission Date: 20220721
  Serious: Yes (Hospitalization, Other)
  Sender: FDA-Public Use
  Company Number: US-ROCHE-3032085

PATIENT
  Age: 43 Year
  Sex: Female

DRUGS (27)
  1. OCRELIZUMAB [Suspect]
     Active Substance: OCRELIZUMAB
     Indication: Multiple sclerosis
     Dosage: SECOND INFUSION ON 12/OCT/2021. THEN EVERY 6 MONTHS
     Route: 042
     Dates: start: 20210927
  2. OCRELIZUMAB [Suspect]
     Active Substance: OCRELIZUMAB
     Dosage: SECOND INFUSION ON 12-OCT-2021. THEN EVERY 6 MONTHS
     Route: 042
     Dates: start: 20211012
  3. BACLOFEN [Concomitant]
     Active Substance: BACLOFEN
     Dosage: FOR MEDICAL HISTORY
     Dates: start: 20210126
  4. FLOVENT [Concomitant]
     Active Substance: FLUTICASONE PROPIONATE
     Dosage: FOR MEDICAL HISTORY
     Dates: start: 20210721
  5. LORAZEPAM [Concomitant]
     Active Substance: LORAZEPAM
     Dosage: FOR MEDICAL HISTORY
     Dates: start: 20210829
  6. MODAFINIL [Concomitant]
     Active Substance: MODAFINIL
     Dosage: FOR MEDICAL HISTORY
     Dates: start: 20210923
  7. PHENERGAN [Concomitant]
     Active Substance: PROMETHAZINE HYDROCHLORIDE
     Dates: start: 2015, end: 20220309
  8. AMITRIPTYLINE [Concomitant]
     Active Substance: AMITRIPTYLINE
     Dates: start: 2012
  9. BETAMETHASONE DIPROPIONATE [Concomitant]
     Active Substance: BETAMETHASONE DIPROPIONATE
     Dates: start: 2020
  10. VITAMIN D3 [Concomitant]
     Active Substance: CHOLECALCIFEROL
     Dates: start: 2016
  11. LISINOPRIL [Concomitant]
     Active Substance: LISINOPRIL
     Dates: start: 2001, end: 2022
  12. TOPIRAMATE [Concomitant]
     Active Substance: TOPIRAMATE
     Dates: start: 2001
  13. OMEGA 3 [Concomitant]
     Active Substance: CAPSAICIN
     Dates: start: 2021
  14. ONABOTULINUMTOXINA [Concomitant]
     Active Substance: ONABOTULINUMTOXINA
     Dates: start: 2021
  15. AJOVY [Concomitant]
     Active Substance: FREMANEZUMAB-VFRM
     Dates: start: 2021
  16. ACYCLOVIR [Concomitant]
     Active Substance: ACYCLOVIR
     Dates: start: 2018
  17. SUMATRIPTAN [Concomitant]
     Active Substance: SUMATRIPTAN
     Dates: start: 2004
  18. SINGULAIR [Concomitant]
     Active Substance: MONTELUKAST SODIUM
     Dates: start: 2022
  19. NASONEX [Concomitant]
     Active Substance: MOMETASONE FUROATE
     Dates: start: 2015
  20. ALBUTEROL [Concomitant]
     Active Substance: ALBUTEROL
     Dates: start: 2020
  21. LEXAPRO [Concomitant]
     Active Substance: ESCITALOPRAM OXALATE
     Dates: start: 2002
  22. ZOFRAN [Concomitant]
     Active Substance: ONDANSETRON HYDROCHLORIDE
     Dates: start: 2022
  23. CLONAZEPAM [Concomitant]
     Active Substance: CLONAZEPAM
     Indication: Psychogenic seizure
     Dates: start: 20220226, end: 20220302
  24. PROMETHAZINE [Concomitant]
     Active Substance: PROMETHAZINE HYDROCHLORIDE
     Dates: start: 2015, end: 20220309
  25. PEPCID [Concomitant]
     Active Substance: FAMOTIDINE
     Dates: start: 2022
  26. DIFLUCAN [Concomitant]
     Active Substance: FLUCONAZOLE
     Dates: start: 2022
  27. HYDROXYZINE [Concomitant]
     Active Substance: HYDROXYZINE HYDROCHLORIDE
     Indication: Anxiety
     Dates: start: 20220309

REACTIONS (2)
  - Sepsis [Recovered/Resolved]
  - Gastroenteritis [Recovered/Resolved]

NARRATIVE: CASE EVENT DATE: 20220215
